FAERS Safety Report 7387053-6 (Version None)
Quarter: 2011Q1

REPORT INFORMATION
  Report Type: 
  Country: None (occurrence: None)
  Receive Date: 20110331
  Receipt Date: 20110323
  Transmission Date: 20110831
  Serious: Yes (Other)
  Sender: FDA-Public Use
  Company Number: GB-MERCK-1103GBR00117

PATIENT
  Age: 51 Year
  Sex: Female
  Weight: 109 kg

DRUGS (7)
  1. JANUVIA [Suspect]
     Route: 048
     Dates: start: 20110311
  2. CALCIUM CARBONATE [Concomitant]
     Route: 065
     Dates: start: 20110211
  3. DOXAZOSIN MESYLATE [Concomitant]
     Route: 065
     Dates: start: 20110128
  4. AMLODIPINE [Concomitant]
     Route: 065
     Dates: start: 20110128
  5. ATORVASTATIN [Concomitant]
     Route: 065
     Dates: start: 20110128
  6. GLICLAZIDE [Concomitant]
     Route: 065
     Dates: start: 20110128
  7. METFORMIN [Concomitant]
     Route: 065
     Dates: start: 20110128

REACTIONS (1)
  - MYALGIA [None]
